FAERS Safety Report 4500307-3 (Version None)
Quarter: 2004Q4

REPORT INFORMATION
  Report Type: 
  Country: None (occurrence: None)
  Receive Date: 20041109
  Receipt Date: 20041028
  Transmission Date: 20050328
  Serious: Yes (Other)
  Sender: FDA-Public Use
  Company Number: 2004241440US

PATIENT
  Age: 54 Year
  Sex: Male

DRUGS (2)
  1. BEXTRA [Suspect]
     Indication: TENDON INJURY
     Dosage: 20 MG, QD, ORAL
     Route: 048
     Dates: start: 20040501, end: 20040501
  2. BEXTRA [Suspect]
     Indication: TENDON INJURY
     Dosage: 20 MG, QD, ORAL
     Route: 048
     Dates: start: 20040701, end: 20040701

REACTIONS (3)
  - PHOTOSENSITIVE RASH [None]
  - RASH GENERALISED [None]
  - TENDON INJURY [None]
